FAERS Safety Report 18339763 (Version 1)
Quarter: 2020Q4

REPORT INFORMATION
  Report Type: Report from Study
  Country: US (occurrence: US)
  Receive Date: 20201002
  Receipt Date: 20201002
  Transmission Date: 20210113
  Serious: Yes (Hospitalization)
  Sender: FDA-Public Use
  Company Number: US-JNJFOC-A-NJ2016-142076

PATIENT
  Age: 36 Year
  Sex: Female
  Weight: 45.4 kg

DRUGS (14)
  1. UPTRAVI [Suspect]
     Active Substance: SELEXIPAG
     Dosage: 1200 MCG, BID
     Route: 048
  2. UPTRAVI [Suspect]
     Active Substance: SELEXIPAG
     Indication: PULMONARY ARTERIAL HYPERTENSION
     Dosage: 1600 MCG, BID
     Route: 048
     Dates: start: 20161005
  3. UPTRAVI [Suspect]
     Active Substance: SELEXIPAG
     Dosage: 1000 MCG, QAM
     Route: 048
  4. UPTRAVI [Suspect]
     Active Substance: SELEXIPAG
     Dosage: 1000 MCG, BID
     Route: 048
  5. UPTRAVI [Suspect]
     Active Substance: SELEXIPAG
     Dosage: 1400 MCG, BID
     Route: 048
  6. UPTRAVI [Suspect]
     Active Substance: SELEXIPAG
     Dosage: 600 MCG, BID
     Route: 048
     Dates: start: 20160812
  7. ELIQUIS [Concomitant]
     Active Substance: APIXABAN
  8. OPSUMIT [Suspect]
     Active Substance: MACITENTAN
     Dosage: 10 MG, QD
     Route: 048
  9. UPTRAVI [Suspect]
     Active Substance: SELEXIPAG
     Dosage: 1200 MCG, QPM
     Route: 048
  10. IMODIUM [Concomitant]
     Active Substance: LOPERAMIDE HYDROCHLORIDE
  11. ADCIRCA [Suspect]
     Active Substance: TADALAFIL
     Indication: PRODUCT USED FOR UNKNOWN INDICATION
     Route: 065
  12. DILTIAZEM. [Concomitant]
     Active Substance: DILTIAZEM
  13. OPSUMIT [Suspect]
     Active Substance: MACITENTAN
     Indication: PULMONARY ARTERIAL HYPERTENSION
     Dosage: 10 MG, QD
     Route: 048
     Dates: start: 20160830
  14. UPTRAVI [Suspect]
     Active Substance: SELEXIPAG
     Dosage: 800 MCG, BID
     Route: 048

REACTIONS (18)
  - Asthma [Unknown]
  - Loss of consciousness [Unknown]
  - Feeling abnormal [Unknown]
  - Hypotension [Unknown]
  - Palpitations [Unknown]
  - Frequent bowel movements [Unknown]
  - Weight decreased [Unknown]
  - Fatigue [Unknown]
  - Swelling [Unknown]
  - Malaise [Unknown]
  - Abdominal discomfort [Unknown]
  - Fluid retention [Unknown]
  - Localised oedema [Unknown]
  - Syncope [Unknown]
  - Abdominal distension [Unknown]
  - Rash [Unknown]
  - Diarrhoea [Unknown]
  - Decreased appetite [Unknown]
